FAERS Safety Report 5726800-3 (Version None)
Quarter: 2008Q2

REPORT INFORMATION
  Report Type: 
  Country: None (occurrence: None)
  Receive Date: 20080502
  Receipt Date: 20080421
  Transmission Date: 20081010
  Serious: Yes (Hospitalization)
  Sender: FDA-Public Use
  Company Number: NL-JNJFOC-20080205366

PATIENT
  Sex: Male

DRUGS (4)
  1. RISPERDAL [Suspect]
     Indication: PANIC ATTACK
  2. RISPERDAL [Suspect]
     Indication: AUTISM SPECTRUM DISORDER
  3. CONCERTA [Suspect]
     Indication: PANIC ATTACK
     Route: 048
  4. CONCERTA [Suspect]
     Indication: AUTISM SPECTRUM DISORDER
     Route: 048

REACTIONS (3)
  - DYSTONIA [None]
  - HYPOTONIA [None]
  - SPEECH DISORDER [None]
